FAERS Safety Report 16443008 (Version 2)
Quarter: 2019Q3

REPORT INFORMATION
  Report Type: Spontaneous
  Country: FR (occurrence: FR)
  Receive Date: 20190617
  Receipt Date: 20190725
  Transmission Date: 20191004
  Serious: Yes (Hospitalization, Other)
  Sender: FDA-Public Use
  Company Number: PHHY2019FR134260

PATIENT
  Age: 72 Year
  Sex: Male
  Weight: 83.9 kg

DRUGS (24)
  1. BORTEZOMIB. [Suspect]
     Active Substance: BORTEZOMIB
     Indication: AMYLOIDOSIS
     Dosage: 2.63 MG, QW
     Route: 058
     Dates: start: 20181116, end: 20190517
  2. ALLOPURINOL. [Concomitant]
     Active Substance: ALLOPURINOL
     Indication: HYPERURICAEMIA
     Dosage: 50 UG, QD
     Route: 048
     Dates: start: 20180807
  3. ZELITREX [Concomitant]
     Active Substance: VALACYCLOVIR HYDROCHLORIDE
     Indication: ANTIVIRAL PROPHYLAXIS
     Dosage: 500 MG, QD
     Route: 048
     Dates: start: 20181201
  4. CYCLOPHOSPHAMIDE. [Suspect]
     Active Substance: CYCLOPHOSPHAMIDE
     Indication: AMYLOIDOSIS
     Dosage: 500 MG, QW
     Route: 048
     Dates: start: 20181116, end: 20190517
  5. INNOHEP [Concomitant]
     Active Substance: TINZAPARIN SODIUM
     Indication: THROMBOSIS PROPHYLAXIS
     Dosage: 4500 IU, QD
     Route: 058
     Dates: start: 20180901, end: 20190120
  6. INNOHEP [Concomitant]
     Active Substance: TINZAPARIN SODIUM
     Dosage: 14000 IU, QD
     Route: 058
     Dates: start: 20190121, end: 20190214
  7. GAMMANORM [Concomitant]
     Active Substance: HUMAN IMMUNOGLOBULIN G
     Indication: IMMUNOSUPPRESSANT DRUG THERAPY
     Dosage: 165 MG, QW
     Route: 058
     Dates: start: 20190220
  8. INNOHEP [Concomitant]
     Active Substance: TINZAPARIN SODIUM
     Dosage: 12000 IU, QD
     Route: 058
     Dates: start: 20190215, end: 20190301
  9. LASIX [Concomitant]
     Active Substance: FUROSEMIDE
     Dosage: 80 MG, QD
     Route: 048
     Dates: start: 20190405
  10. COUMADINE [Concomitant]
     Active Substance: WARFARIN SODIUM
     Dosage: 4 MG, QD
     Route: 048
     Dates: start: 20190118, end: 20190201
  11. COUMADINE [Concomitant]
     Active Substance: WARFARIN SODIUM
     Dosage: 6 MG, QD
     Route: 048
     Dates: start: 20190328, end: 20190405
  12. LASIX [Concomitant]
     Active Substance: FUROSEMIDE
     Dosage: 40 MG, QW
     Route: 048
     Dates: start: 20181207
  13. PERMIXON [Concomitant]
     Active Substance: HERBALS\SAW PALMETTO
     Indication: BENIGN PROSTATIC HYPERPLASIA
     Dosage: 160 MG, QD
     Route: 048
     Dates: start: 20180807
  14. SULFAMETHOXAZOLE AND TRIMETHOPRIM [Concomitant]
     Active Substance: SULFAMETHOXAZOLE\TRIMETHOPRIM
     Indication: ANTIBIOTIC PROPHYLAXIS
     Dosage: 2400 UG, QW
     Route: 048
     Dates: start: 20181123
  15. DEXAMETHASONE. [Suspect]
     Active Substance: DEXAMETHASONE
     Indication: AMYLOIDOSIS
     Dosage: 40 MG, QW
     Route: 048
     Dates: start: 20181116, end: 20190518
  16. LEVOTHYROX [Concomitant]
     Active Substance: LEVOTHYROXINE
     Indication: THYROIDECTOMY
     Dosage: 137.5 UG, QD
     Route: 048
     Dates: start: 2000
  17. COUMADINE [Concomitant]
     Active Substance: WARFARIN SODIUM
     Dosage: 5 MG, QD
     Route: 048
     Dates: start: 20190201, end: 20190208
  18. COUMADINE [Concomitant]
     Active Substance: WARFARIN SODIUM
     Dosage: 6 MG, QD
     Route: 048
     Dates: start: 20190209, end: 20190228
  19. TAMSULOSINE [Concomitant]
     Active Substance: TAMSULOSIN HYDROCHLORIDE
     Indication: BENIGN PROSTATIC HYPERPLASIA
     Dosage: 0.4 MG, QD
     Route: 048
     Dates: start: 20180807
  20. LASIX [Concomitant]
     Active Substance: FUROSEMIDE
     Indication: HYPERTENSION
     Dosage: 80 MG, QD
     Route: 048
     Dates: start: 20180614, end: 20181130
  21. COUMADINE [Concomitant]
     Active Substance: WARFARIN SODIUM
     Indication: PULMONARY EMBOLISM
     Dosage: 4 MG, QD
     Route: 048
     Dates: start: 201808, end: 20181024
  22. COUMADINE [Concomitant]
     Active Substance: WARFARIN SODIUM
     Dosage: 8 MG, QD
     Route: 048
     Dates: start: 20190406
  23. LASIX [Concomitant]
     Active Substance: FUROSEMIDE
     Dosage: 40 MG, QW
     Route: 048
     Dates: start: 20181214
  24. LASIX [Concomitant]
     Active Substance: FUROSEMIDE
     Dosage: 40 MG, QW
     Route: 048
     Dates: start: 20190405

REACTIONS (9)
  - Oedema peripheral [Unknown]
  - Lung disorder [Recovered/Resolved]
  - Hypogammaglobulinaemia [Unknown]
  - Bronchitis [Unknown]
  - Pneumonia [Unknown]
  - Product use in unapproved indication [Unknown]
  - Pneumonia pneumococcal [Unknown]
  - Hiccups [Unknown]
  - Off label use [Unknown]

NARRATIVE: CASE EVENT DATE: 20181116
